FAERS Safety Report 21747332 (Version 1)
Quarter: 2022Q4

REPORT INFORMATION
  Report Type: Spontaneous
  Country: RU (occurrence: RU)
  Receive Date: 20221219
  Receipt Date: 20221219
  Transmission Date: 20230112
  Serious: Yes (Other)
  Sender: FDA-Public Use
  Company Number: RU-STRIDES ARCOLAB LIMITED-2022SP016953

PATIENT
  Age: 69 Year
  Sex: Female

DRUGS (8)
  1. MYCOPHENOLATE MOFETIL [Suspect]
     Active Substance: MYCOPHENOLATE MOFETIL
     Indication: Anti-neutrophil cytoplasmic antibody positive vasculitis
     Dosage: 1.5 GRAM (DAILY)
     Route: 065
  2. PREDNISOLONE [Suspect]
     Active Substance: PREDNISOLONE
     Indication: Anti-neutrophil cytoplasmic antibody positive vasculitis
     Dosage: 60 MILLIGRAM (DAILY)
     Route: 042
  3. PREDNISOLONE [Suspect]
     Active Substance: PREDNISOLONE
     Dosage: 60 MILLIGRAM (DAILY)
     Route: 048
  4. PREDNISOLONE [Suspect]
     Active Substance: PREDNISOLONE
     Dosage: UNK (DOSE DECREASED)
     Route: 065
  5. AZATHIOPRINE [Suspect]
     Active Substance: AZATHIOPRINE
     Indication: Anti-neutrophil cytoplasmic antibody positive vasculitis
     Dosage: 100 MILLIGRAM PER DAY
     Route: 065
     Dates: start: 201905
  6. CYCLOPHOSPHAMIDE [Suspect]
     Active Substance: CYCLOPHOSPHAMIDE
     Indication: Anti-neutrophil cytoplasmic antibody positive vasculitis
     Dosage: 3700 MILLIGRAM, UNKNOWN
     Route: 065
  7. RITUXIMAB [Suspect]
     Active Substance: RITUXIMAB
     Indication: Anti-neutrophil cytoplasmic antibody positive vasculitis
     Dosage: 1 GRAM, UNKNOWN
     Route: 042
     Dates: start: 201905
  8. RITUXIMAB [Suspect]
     Active Substance: RITUXIMAB
     Dosage: 2.5 GRAM, UNKNOWN
     Route: 042
     Dates: start: 202001

REACTIONS (8)
  - Hepatotoxicity [Unknown]
  - Diabetes mellitus [Unknown]
  - Cataract [Unknown]
  - Hypertension [Unknown]
  - COVID-19 [Recovered/Resolved]
  - Drug ineffective [Unknown]
  - Conjunctivitis [Unknown]
  - Off label use [Unknown]
